FAERS Safety Report 8546318-2 (Version None)
Quarter: 2012Q3

REPORT INFORMATION
  Report Type: 
  Country: None (occurrence: None)
  Receive Date: 20120727
  Receipt Date: 20111213
  Transmission Date: 20120928
  Serious: No
  Sender: FDA-Public Use
  Company Number: US-ASTRAZENECA-2011SE75774

PATIENT
  Age: 39 Year
  Sex: Male

DRUGS (4)
  1. SEROQUEL XR [Suspect]
     Indication: SCHIZOPHRENIA
     Dosage: TOOK TWO TABLETS
     Route: 048
  2. SEROQUEL XR [Suspect]
     Dosage: ONE PER DAY
     Route: 048
  3. SEROQUEL XR [Suspect]
     Dosage: ONE PER DAY
     Route: 048
  4. SEROQUEL XR [Suspect]
     Indication: SLEEP DISORDER
     Dosage: TOOK TWO TABLETS
     Route: 048

REACTIONS (2)
  - THERAPY REGIMEN CHANGED [None]
  - ABNORMAL DREAMS [None]
